FAERS Safety Report 25819640 (Version 1)
Quarter: 2025Q3

REPORT INFORMATION
  Report Type: Spontaneous
  Country: EU (occurrence: EU)
  Receive Date: 20250918
  Receipt Date: 20250918
  Transmission Date: 20251021
  Serious: Yes (Hospitalization)
  Sender: MYLAN
  Company Number: None

PATIENT
  Age: 49 Year
  Sex: Female

DRUGS (24)
  1. ZOLPIDEM [Suspect]
     Active Substance: ZOLPIDEM TARTRATE
     Indication: Product used for unknown indication
     Dosage: 20 MILLIGRAM, QD (EVENING, 10 MG 2 AT BEDTIME)
  2. ZOLPIDEM [Suspect]
     Active Substance: ZOLPIDEM TARTRATE
     Dosage: 20 MILLIGRAM, QD (EVENING, 10 MG 2 AT BEDTIME)
     Route: 048
  3. ZOLPIDEM [Suspect]
     Active Substance: ZOLPIDEM TARTRATE
     Dosage: 20 MILLIGRAM, QD (EVENING, 10 MG 2 AT BEDTIME)
     Route: 048
  4. ZOLPIDEM [Suspect]
     Active Substance: ZOLPIDEM TARTRATE
     Dosage: 20 MILLIGRAM, QD (EVENING, 10 MG 2 AT BEDTIME)
  5. ALCOHOL [Suspect]
     Active Substance: ALCOHOL
     Indication: Product used for unknown indication
  6. ALCOHOL [Suspect]
     Active Substance: ALCOHOL
     Route: 048
  7. ALCOHOL [Suspect]
     Active Substance: ALCOHOL
     Route: 048
  8. ALCOHOL [Suspect]
     Active Substance: ALCOHOL
  9. CYAMEMAZINE [Concomitant]
     Active Substance: CYAMEMAZINE
     Dosage: 25 MILLIGRAM, BID (EVENING AND BEDTIME)
  10. CYAMEMAZINE [Concomitant]
     Active Substance: CYAMEMAZINE
     Dosage: 25 MILLIGRAM, BID (EVENING AND BEDTIME)
     Route: 065
  11. CYAMEMAZINE [Concomitant]
     Active Substance: CYAMEMAZINE
     Dosage: 25 MILLIGRAM, BID (EVENING AND BEDTIME)
     Route: 065
  12. CYAMEMAZINE [Concomitant]
     Active Substance: CYAMEMAZINE
     Dosage: 25 MILLIGRAM, BID (EVENING AND BEDTIME)
  13. VALIUM [Concomitant]
     Active Substance: DIAZEPAM
     Dosage: 1.5 DOSAGE FORM, QD (1.5 TABLETS AT BEDTIME)
  14. VALIUM [Concomitant]
     Active Substance: DIAZEPAM
     Dosage: 1.5 DOSAGE FORM, QD (1.5 TABLETS AT BEDTIME)
     Route: 065
  15. VALIUM [Concomitant]
     Active Substance: DIAZEPAM
     Dosage: 1.5 DOSAGE FORM, QD (1.5 TABLETS AT BEDTIME)
     Route: 065
  16. VALIUM [Concomitant]
     Active Substance: DIAZEPAM
     Dosage: 1.5 DOSAGE FORM, QD (1.5 TABLETS AT BEDTIME)
  17. MIANSERIN [Concomitant]
     Active Substance: MIANSERIN
     Dosage: TID (10 MG MORNING, NOON, AND 20 MG NIGHT)
  18. MIANSERIN [Concomitant]
     Active Substance: MIANSERIN
     Dosage: TID (10 MG MORNING, NOON, AND 20 MG NIGHT)
     Route: 065
  19. MIANSERIN [Concomitant]
     Active Substance: MIANSERIN
     Dosage: TID (10 MG MORNING, NOON, AND 20 MG NIGHT)
     Route: 065
  20. MIANSERIN [Concomitant]
     Active Substance: MIANSERIN
     Dosage: TID (10 MG MORNING, NOON, AND 20 MG NIGHT)
  21. LAMICTAL [Concomitant]
     Active Substance: LAMOTRIGINE
     Dosage: 200 MILLIGRAM, QD (MORNING)
  22. LAMICTAL [Concomitant]
     Active Substance: LAMOTRIGINE
     Dosage: 200 MILLIGRAM, QD (MORNING)
     Route: 065
  23. LAMICTAL [Concomitant]
     Active Substance: LAMOTRIGINE
     Dosage: 200 MILLIGRAM, QD (MORNING)
     Route: 065
  24. LAMICTAL [Concomitant]
     Active Substance: LAMOTRIGINE
     Dosage: 200 MILLIGRAM, QD (MORNING)

REACTIONS (8)
  - Cerebellar syndrome [Not Recovered/Not Resolved]
  - Nystagmus [Not Recovered/Not Resolved]
  - Anisocoria [Not Recovered/Not Resolved]
  - Encephalopathy [Not Recovered/Not Resolved]
  - General physical health deterioration [Not Recovered/Not Resolved]
  - Drug abuse [Not Recovered/Not Resolved]
  - Cognitive disorder [Not Recovered/Not Resolved]
  - Ataxia [Not Recovered/Not Resolved]

NARRATIVE: CASE EVENT DATE: 20240101
